FAERS Safety Report 22022894 (Version 3)
Quarter: 2023Q1

REPORT INFORMATION
  Report Type: Report from Study
  Country: CA (occurrence: CA)
  Receive Date: 20230222
  Receipt Date: 20230223
  Transmission Date: 20230418
  Serious: Yes (Disabling, Other)
  Sender: FDA-Public Use
  Company Number: CA-HLS-202005697

PATIENT
  Age: 42 Year
  Sex: Female

DRUGS (21)
  1. CLOZARIL [Suspect]
     Active Substance: CLOZAPINE
     Indication: Product used for unknown indication
     Dosage: RESTARTED ON APR-2022
     Route: 065
  2. CLOZARIL [Suspect]
     Active Substance: CLOZAPINE
     Indication: Product used for unknown indication
     Dosage: 50MG OD
     Route: 048
     Dates: start: 20180926, end: 20220323
  3. LACTOBACILLUS ACIDOPHILUS [Concomitant]
     Active Substance: LACTOBACILLUS ACIDOPHILUS
     Indication: Product used for unknown indication
     Route: 065
     Dates: start: 20080929
  4. PHENOBARBITAL [Concomitant]
     Active Substance: PHENOBARBITAL
     Indication: Product used for unknown indication
     Dosage: 45 MG TID
     Route: 048
     Dates: start: 20081117
  5. ZANTAC [Concomitant]
     Active Substance: RANITIDINE HYDROCHLORIDE
     Indication: Product used for unknown indication
     Dosage: 150 MG BID EMPTY STOMACH
     Route: 048
  6. DOCUSATE SODIUM [Concomitant]
     Active Substance: DOCUSATE SODIUM
     Indication: Product used for unknown indication
     Dosage: 100 MG BID
     Route: 048
     Dates: start: 20101214
  7. PAXIL [Concomitant]
     Active Substance: PAROXETINE HYDROCHLORIDE
     Indication: Product used for unknown indication
     Dosage: 40 MG DAILY X 3 MONTHS
     Route: 048
     Dates: start: 20090602
  8. VITAMIN D [Concomitant]
     Active Substance: VITAMIN D NOS
     Indication: Product used for unknown indication
     Dosage: 3000 IU OD X 3 MONTHS
     Route: 048
     Dates: start: 20110411
  9. CALCIUM CARBONATE [Concomitant]
     Active Substance: CALCIUM CARBONATE
     Indication: Product used for unknown indication
     Dosage: 1500 MG DAILY X 3 MONTHS
     Route: 065
  10. CALCIUM CARBONATE [Concomitant]
     Active Substance: CALCIUM CARBONATE
     Indication: Product used for unknown indication
     Dosage: 1000 MG BID X 3 MONTHS
     Route: 048
  11. HYDROCORTISONE [Concomitant]
     Active Substance: HYDROCORTISONE
     Indication: Product used for unknown indication
     Dosage: 1% BID PRN
     Route: 065
  12. IBUPROFEN [Concomitant]
     Active Substance: IBUPROFEN
     Indication: Product used for unknown indication
     Dosage: 40O MG TID PRN
     Route: 048
  13. AMOXIL [Concomitant]
     Active Substance: AMOXICILLIN
     Indication: Product used for unknown indication
     Dosage: 4 HOURS PRIOR TO DENTAL PROCEDURE
     Route: 065
  14. FLUOCINOLONE [Concomitant]
     Active Substance: FLUOCINOLONE
     Indication: Product used for unknown indication
     Dosage: 0.01 %  3-4 DROPS 2 TIMES DAILY AS NEEDED FOR 7 DAYS USE WHEN EAR RED AUDITORY CANAL OR INCREASED IT
     Route: 065
     Dates: start: 20160628
  15. LACTULOSE [Concomitant]
     Active Substance: LACTULOSE
     Indication: Constipation
     Dosage: 15-30 ML  DAILY PRN
     Route: 048
     Dates: start: 20111115
  16. METROGEL [Concomitant]
     Active Substance: METRONIDAZOLE
     Indication: Product used for unknown indication
     Dosage: BID
     Route: 061
     Dates: start: 20090210
  17. CLOTRIMAZOLE [Concomitant]
     Active Substance: CLOTRIMAZOLE
     Indication: Product used for unknown indication
     Dosage: TID PRN
     Route: 065
  18. NIZORAL [Concomitant]
     Active Substance: KETOCONAZOLE
     Indication: Product used for unknown indication
     Route: 065
  19. ENSTILAR [Concomitant]
     Active Substance: BETAMETHASONE DIPROPIONATE\CALCIPOTRIENE HYDRATE
     Indication: Product used for unknown indication
     Dosage: BODY WHEN NEEDED AND FOLDS
     Route: 065
     Dates: start: 20210518
  20. LORAZEPAM [Concomitant]
     Active Substance: LORAZEPAM
     Indication: Product used for unknown indication
     Dosage: 0.5-1 MG BY MOUTH 1 HR PRIOR TO PROCEDURE
     Route: 048
     Dates: start: 20181106
  21. SKYRIZI [Concomitant]
     Active Substance: RISANKIZUMAB-RZAA
     Indication: Product used for unknown indication
     Dosage: 150 MG SC WEEK 0, 4 AND THEN Q 12 WEEKS
     Route: 065
     Dates: start: 20210903

REACTIONS (27)
  - Neutrophil count decreased [Unknown]
  - Early onset primary dystonia [Unknown]
  - Therapy interrupted [Recovered/Resolved]
  - Tympanic membrane perforation [Unknown]
  - Multiple cardiac defects [Unknown]
  - 22q11.2 deletion syndrome [Unknown]
  - Disability [Unknown]
  - Dystonia [Unknown]
  - Strabismus [Unknown]
  - Hearing aid therapy [Unknown]
  - Hepatic function abnormal [Not Recovered/Not Resolved]
  - Kyphoscoliosis [Unknown]
  - Liver disorder [Unknown]
  - Mental impairment [Unknown]
  - Cataract [Unknown]
  - Oculogyric crisis [Unknown]
  - Osteoporosis [Unknown]
  - Epilepsy [Unknown]
  - Pilonidal disease [Unknown]
  - Psoriasis [Unknown]
  - Schizophrenia [Unknown]
  - Seizure [Unknown]
  - Physical deconditioning [Unknown]
  - Thrombocytopenia [Unknown]
  - Thrombocytopenia [Not Recovered/Not Resolved]
  - Urinary incontinence [Not Recovered/Not Resolved]
  - Cayler cardiofacial syndrome [Unknown]

NARRATIVE: CASE EVENT DATE: 20181107
